FAERS Safety Report 5606489-4 (Version None)
Quarter: 2008Q1

REPORT INFORMATION
  Report Type: 
  Country: None (occurrence: None)
  Receive Date: 20080125
  Receipt Date: 20080110
  Transmission Date: 20080703
  Serious: Yes (Life-Threatening, Other)
  Sender: FDA-Public Use
  Company Number: MC200800028

PATIENT
  Age: 82 Year
  Sex: Female
  Weight: 75 kg

DRUGS (6)
  1. ANGIOMAX [Suspect]
     Indication: PERCUTANEOUS CORONARY INTERVENTION
     Dosage: 11.3 ML, BOLUS, IV BOLUS; 2 ML, INTRAVENOUS
     Route: 040
     Dates: start: 20080110, end: 20080110
  2. ANGIOMAX [Suspect]
     Indication: PERCUTANEOUS CORONARY INTERVENTION
     Dosage: 11.3 ML, BOLUS, IV BOLUS; 2 ML, INTRAVENOUS
     Route: 040
     Dates: start: 20080110, end: 20080110
  3. CONTRAST MEDIA [Suspect]
     Dosage: 150 ML, SINGLE, INTRAVENOUS
     Route: 042
     Dates: start: 20080110, end: 20080110
  4. HEPARIN SODIUM W/SODIUM CHLORIDE (HEPARIN SODIUM, SODIUM CHLORIDE) [Concomitant]
  5. VERSED [Concomitant]
  6. FENTANYL [Concomitant]

REACTIONS (9)
  - BLOOD PRESSURE INCREASED [None]
  - CONTRAST MEDIA REACTION [None]
  - DRUG HYPERSENSITIVITY [None]
  - HEART RATE INCREASED [None]
  - MEAN ARTERIAL PRESSURE INCREASED [None]
  - RASH [None]
  - TONGUE BITING [None]
  - TONGUE HAEMORRHAGE [None]
  - VENTRICULAR FIBRILLATION [None]
